FAERS Safety Report 5080106-7 (Version None)
Quarter: 2006Q3

REPORT INFORMATION
  Report Type: 
  Country: None (occurrence: None)
  Receive Date: 20060815
  Receipt Date: 20060405
  Transmission Date: 20061208
  Serious: Yes (Other)
  Sender: FDA-Public Use
  Company Number: 2006UW06817

PATIENT
  Age: 37 Year
  Sex: Male
  Weight: 86.4 kg

DRUGS (2)
  1. SEROQUEL [Suspect]
     Indication: BIPOLAR DISORDER
     Route: 048
     Dates: start: 20050901
  2. PROZAC [Concomitant]
     Indication: BIPOLAR I DISORDER
     Route: 048
     Dates: start: 20050101

REACTIONS (1)
  - DRUG WITHDRAWAL SYNDROME [None]
